FAERS Safety Report 23146662 (Version 1)
Quarter: 2023Q4

REPORT INFORMATION
  Report Type: Spontaneous
  Country: US (occurrence: US)
  Receive Date: 20231105
  Receipt Date: 20231105
  Transmission Date: 20240109
  Serious: No
  Sender: FDA-Public Use
  Company Number: US-009507513-2310USA001055

PATIENT
  Sex: Male

DRUGS (2)
  1. BELSOMRA [Suspect]
     Active Substance: SUVOREXANT
     Indication: Insomnia
     Dosage: 1 TABLET OF AN UNKNOWN STRENGTH
  2. BELSOMRA [Suspect]
     Active Substance: SUVOREXANT
     Dosage: 2 TABLETS OF AN UNKNOWN STRENGTH
     Dates: start: 20231002

REACTIONS (1)
  - Drug ineffective [Not Recovered/Not Resolved]
